FAERS Safety Report 16637094 (Version 1)
Quarter: 2019Q3

REPORT INFORMATION
  Report Type: Spontaneous
  Country: US (occurrence: US)
  Receive Date: 20190726
  Receipt Date: 20190726
  Transmission Date: 20191004
  Serious: No
  Sender: FDA-Public Use
  Company Number: None

PATIENT

DRUGS (4)
  1. LYRICA [Suspect]
     Active Substance: PREGABALIN
  2. DARVOCET [Suspect]
     Active Substance: ACETAMINOPHEN\PROPOXYPHENE HYDROCHLORIDE
  3. HYDROCODONE [Suspect]
     Active Substance: HYDROCODONE
  4. NAMENDA [Suspect]
     Active Substance: MEMANTINE HYDROCHLORIDE

REACTIONS (12)
  - Neuropathy peripheral [None]
  - Knee arthroplasty [None]
  - Disturbance in social behaviour [None]
  - Foot fracture [None]
  - Cyst [None]
  - Balance disorder [None]
  - Dementia Alzheimer^s type [None]
  - Nerve injury [None]
  - Shoulder arthroplasty [None]
  - Drug withdrawal syndrome [None]
  - Tendon necrosis [None]
  - Foot deformity [None]
